FAERS Safety Report 4876343-4 (Version None)
Quarter: 2006Q1

REPORT INFORMATION
  Report Type: 
  Country: None (occurrence: None)
  Receive Date: 20060110
  Receipt Date: 20051230
  Transmission Date: 20060701
  Serious: Yes (Hospitalization)
  Sender: FDA-Public Use
  Company Number: PHRM2005FR03423

PATIENT
  Age: 49 Year
  Sex: Male

DRUGS (4)
  1. PARACETAMOL [Suspect]
     Indication: HEADACHE
     Route: 048
     Dates: start: 20050919, end: 20050920
  2. PARACETAMOL [Suspect]
     Dosage: 12 TABLETS DAILY
     Route: 048
     Dates: start: 20050921, end: 20050921
  3. GYNERGENE CAFEINE [Suspect]
     Indication: HEADACHE
     Route: 048
     Dates: start: 20050919, end: 20050920
  4. GYNERGENE CAFEINE [Suspect]
     Dosage: 11 TABLETS DAILY
     Route: 048
     Dates: start: 20050921, end: 20050921

REACTIONS (12)
  - ANURIA [None]
  - BLOOD CREATININE DECREASED [None]
  - BLOOD UREA INCREASED [None]
  - CEREBRAL INFARCTION [None]
  - CEREBRAL ISCHAEMIA [None]
  - CEREBRAL VENOUS THROMBOSIS [None]
  - CONVULSION [None]
  - DEPRESSED LEVEL OF CONSCIOUSNESS [None]
  - HEMIPARESIS [None]
  - INTUBATION [None]
  - OVERDOSE [None]
  - RENAL FAILURE ACUTE [None]
